FAERS Safety Report 25006859 (Version 1)
Quarter: 2025Q1

REPORT INFORMATION
  Report Type: Spontaneous
  Country: IT (occurrence: IT)
  Receive Date: 20250225
  Receipt Date: 20250225
  Transmission Date: 20250408
  Serious: Yes (Other)
  Sender: AUROBINDO
  Company Number: IT-MINISAL02-1024456

PATIENT
  Age: 84 Year
  Sex: Female
  Weight: 60 kg

DRUGS (9)
  1. ENALAPRIL [Suspect]
     Active Substance: ENALAPRIL
     Indication: Hypertension
     Dosage: 20 MILLIGRAM, ONCE A DAY
     Route: 048
  2. AVASTIN [Suspect]
     Active Substance: BEVACIZUMAB
     Indication: Neovascular age-related macular degeneration
     Dates: start: 20221010, end: 20221010
  3. AVASTIN [Suspect]
     Active Substance: BEVACIZUMAB
     Dates: start: 20221128, end: 20221128
  4. AVASTIN [Suspect]
     Active Substance: BEVACIZUMAB
     Dates: start: 20230109, end: 20230109
  5. AVASTIN [Suspect]
     Active Substance: BEVACIZUMAB
     Dates: start: 20230113, end: 20230113
  6. AVASTIN [Suspect]
     Active Substance: BEVACIZUMAB
     Dates: start: 20230612, end: 20230612
  7. AVASTIN [Suspect]
     Active Substance: BEVACIZUMAB
     Dates: start: 20241111, end: 20241111
  8. AVASTIN [Suspect]
     Active Substance: BEVACIZUMAB
     Dates: start: 20250120, end: 20250120
  9. ZOLPIDEM TARTRATE [Concomitant]
     Active Substance: ZOLPIDEM TARTRATE
     Indication: Insomnia
     Dosage: 10 MILLIGRAM, ONCE A DAY
     Route: 048

REACTIONS (4)
  - Condition aggravated [Not Recovered/Not Resolved]
  - Retinal oedema [Not Recovered/Not Resolved]
  - Subretinal fluid [Not Recovered/Not Resolved]
  - Visual acuity reduced [Not Recovered/Not Resolved]

NARRATIVE: CASE EVENT DATE: 20250124
